FAERS Safety Report 24212825 (Version 3)
Quarter: 2024Q3

REPORT INFORMATION
  Report Type: Report from Study
  Country: US (occurrence: US)
  Receive Date: 20240815
  Receipt Date: 20240919
  Transmission Date: 20241017
  Serious: Yes (Other)
  Sender: ROCHE
  Company Number: US-ROCHE-10000053650

PATIENT
  Age: 56 Year
  Sex: Female
  Weight: 72.12 kg

DRUGS (14)
  1. XOLAIR [Suspect]
     Active Substance: OMALIZUMAB
     Indication: Mast cell activation syndrome
     Dosage: MORE DOSAGE INFORMATION IS 150 MG AUTOINJECTOR
     Route: 058
     Dates: start: 20240627
  2. XOLAIR [Suspect]
     Active Substance: OMALIZUMAB
     Indication: Asthma
     Dosage: MORE DOSAGE INFORMATION IS 150 MG AUTOINJECTOR
     Route: 058
     Dates: start: 20240725
  3. XOLAIR [Suspect]
     Active Substance: OMALIZUMAB
     Indication: Asthma
     Dosage: MORE DOSAGE INFORMATION IS 150 MG AUTOINJECTOR
     Route: 058
  4. ALBUTEROL SULFATE [Concomitant]
     Active Substance: ALBUTEROL SULFATE
  5. TRELEGY ELLIPTA [Concomitant]
     Active Substance: FLUTICASONE FUROATE\UMECLIDINIUM BROMIDE\VILANTEROL TRIFENATATE
     Dosage: 1 PUFF DAILY?200-62.5-25 MCG
  6. HYDROXYZINE HYDROCHLORIDE [Concomitant]
     Active Substance: HYDROXYZINE HYDROCHLORIDE
     Route: 048
  7. CROMOLYN [Concomitant]
     Active Substance: CROMOLYN
     Dosage: 4 TIMES DAILY FOR ABOUT30 MINUTES.
  8. ALLEGRA [Concomitant]
     Active Substance: FEXOFENADINE HYDROCHLORIDE
     Route: 048
  9. HUMALOG [Concomitant]
     Active Substance: INSULIN LISPRO
  10. LEVOTHYROXINE [Concomitant]
     Active Substance: LEVOTHYROXINE\LEVOTHYROXINE SODIUM
  11. MASTIC [Concomitant]
     Route: 048
  12. MONTELUKAST SODIUM [Concomitant]
     Active Substance: MONTELUKAST\MONTELUKAST SODIUM
     Route: 048
  13. SYMBICORT [Concomitant]
     Active Substance: BUDESONIDE\FORMOTEROL FUMARATE DIHYDRATE
     Dosage: 1 PUFF IN MORNING AND ONE PUFF IN THE EVENING
  14. CHOLECALCIFEROL [Concomitant]
     Active Substance: CHOLECALCIFEROL

REACTIONS (16)
  - Asthma [Unknown]
  - Irritable bowel syndrome [Unknown]
  - Throat tightness [Unknown]
  - Oral candidiasis [Unknown]
  - Abdominal discomfort [Unknown]
  - Off label use [Unknown]
  - Oral candidiasis [Unknown]
  - Fatigue [Unknown]
  - Vocal cord disorder [Unknown]
  - Anaphylactic shock [Unknown]
  - Ear infection [Unknown]
  - Dysphonia [Unknown]
  - Dry skin [Unknown]
  - Anaemia [Unknown]
  - Headache [Unknown]
  - Eosinophil count decreased [Recovered/Resolved]
